FAERS Safety Report 5265366-1 (Version None)
Quarter: 2007Q1

REPORT INFORMATION
  Report Type: 
  Country: None (occurrence: None)
  Receive Date: 20061213
  Receipt Date: 20040225
  Transmission Date: 20070707
  Serious: No
  Sender: FDA-Public Use
  Company Number: 2004UW03415

PATIENT
  Age: 79 Year
  Sex: Female
  Weight: 43.0917 kg

DRUGS (2)
  1. IRESSA [Suspect]
     Dates: start: 20031211
  2. TIMOPTIC [Concomitant]

REACTIONS (2)
  - LIVER FUNCTION TEST ABNORMAL [None]
  - METASTASES TO LIVER [None]
